FAERS Safety Report 21369877 (Version 1)
Quarter: 2022Q3

REPORT INFORMATION
  Report Type: Spontaneous
  Country: US (occurrence: None)
  Receive Date: 20220922
  Receipt Date: 20220922
  Transmission Date: 20221027
  Serious: Yes (Death)
  Sender: FDA-Public Use
  Company Number: None

PATIENT
  Sex: Female

DRUGS (2)
  1. GRANIX [Suspect]
     Active Substance: TBO-FILGRASTIM
     Indication: Product used for unknown indication
     Dosage: 300 MCG/ML??INJECT 75MCG (0.25ML) UNDER THE SKIN (SUBCUTANEOUS INJECTION) EVERY THURSDAY, DISCARD U
     Route: 058
     Dates: start: 20211005
  2. GRANIX [Suspect]
     Active Substance: TBO-FILGRASTIM
     Dosage: OTHER QUANTITY : 75MCG (0.25ML);?FREQUENCY : AS DIRECTED;?
     Route: 058

REACTIONS (1)
  - Death [None]
